FAERS Safety Report 5191535-5 (Version None)
Quarter: 2006Q4

REPORT INFORMATION
  Report Type: 
  Country: None (occurrence: None)
  Receive Date: 20061219
  Receipt Date: 20061219
  Transmission Date: 20070319
  Serious: No
  Sender: FDA-Public Use
  Company Number: None

PATIENT
  Sex: Male
  Weight: 74.8435 kg

DRUGS (2)
  1. RISPERDAL [Suspect]
     Indication: BIPOLAR DISORDER
  2. NEURONTIN [Suspect]

REACTIONS (4)
  - GROIN PAIN [None]
  - PAINFUL ERECTION [None]
  - PENIS DISORDER [None]
  - TESTICULAR PAIN [None]
